FAERS Safety Report 6173409-6 (Version None)
Quarter: 2009Q2

REPORT INFORMATION
  Report Type: 
  Country: None (occurrence: None)
  Receive Date: 20090430
  Receipt Date: 20090422
  Transmission Date: 20091009
  Serious: Yes (Hospitalization)
  Sender: FDA-Public Use
  Company Number: JP-ABBOTT-09P-087-0569769-00

PATIENT
  Sex: Male

DRUGS (4)
  1. CLARITHROMYCIN [Suspect]
     Indication: HELICOBACTER INFECTION
     Dates: start: 20090401
  2. PASETOCIN [Concomitant]
     Indication: HELICOBACTER INFECTION
     Dates: start: 20090401
  3. UNSPECIFIED PROTON PUMP INHIBITOR, BUT PROBABLY PARIET (SODIUM RABEPRA [Concomitant]
     Indication: HELICOBACTER INFECTION
     Dates: start: 20090401
  4. UNSPECIFIED ANTIFLATULENT [Concomitant]
     Indication: HELICOBACTER INFECTION
     Dates: start: 20090401

REACTIONS (1)
  - ILEUS [None]
